FAERS Safety Report 6006102-0 (Version None)
Quarter: 2008Q4

REPORT INFORMATION
  Report Type: 
  Country: None (occurrence: None)
  Receive Date: 20081217
  Receipt Date: 20081209
  Transmission Date: 20090506
  Serious: Yes (Death)
  Sender: FDA-Public Use
  Company Number: JP-BAYER-200811906BYL

PATIENT
  Age: 64 Year
  Sex: Male

DRUGS (9)
  1. NEXAVAR [Suspect]
     Indication: RENAL CELL CARCINOMA STAGE IV
     Dosage: TOTAL DAILY DOSE: 800 MG  UNIT DOSE: 200 MG
     Route: 048
     Dates: start: 20080421, end: 20080818
  2. TWINLINE [Concomitant]
     Dosage: TOTAL DAILY DOSE: 400 ML  UNIT DOSE: 400 ML
     Route: 048
     Dates: start: 20080502, end: 20080515
  3. NAIXAN [Concomitant]
     Dosage: TOTAL DAILY DOSE: 100 MG  UNIT DOSE: 100 MG
     Route: 048
     Dates: start: 20080502, end: 20080515
  4. MAGMITT [Concomitant]
     Dosage: TOTAL DAILY DOSE: 990 MG  UNIT DOSE: 330 MG
     Route: 048
     Dates: start: 20080502, end: 20080515
  5. NOVAMIN [Concomitant]
     Dosage: TOTAL DAILY DOSE: 15 MG  UNIT DOSE: 5 MG
     Route: 048
     Dates: start: 20080502, end: 20080515
  6. LENDORMIN [Concomitant]
     Dosage: TOTAL DAILY DOSE: 0.25 MG  UNIT DOSE: 0.25 MG
     Route: 048
     Dates: start: 20080502, end: 20080515
  7. FAMOTIDINE [Concomitant]
     Dosage: TOTAL DAILY DOSE: 20 MG  UNIT DOSE: 10 MG
     Route: 048
     Dates: start: 20080510, end: 20080515
  8. VOLTAREN [Concomitant]
     Dosage: UNIT DOSE: 50 MG
     Route: 054
     Dates: start: 20080509, end: 20080509
  9. NAUZELIN [Concomitant]
     Dosage: UNIT DOSE: 60 MG
     Route: 054
     Dates: start: 20080509, end: 20080509

REACTIONS (5)
  - ECZEMA [None]
  - MYOCARDITIS [None]
  - PALMAR-PLANTAR ERYTHRODYSAESTHESIA SYNDROME [None]
  - PNEUMONIA BACTERIAL [None]
  - RENAL CELL CARCINOMA STAGE IV [None]
